FAERS Safety Report 24278979 (Version 1)
Quarter: 2024Q3

REPORT INFORMATION
  Report Type: Spontaneous
  Country: US (occurrence: None)
  Receive Date: 20240831
  Receipt Date: 20240831
  Transmission Date: 20241017
  Serious: No
  Sender: Public
  Company Number: None

PATIENT
  Age: 28 Year
  Sex: Female
  Weight: 94.5 kg

DRUGS (2)
  1. TRUXIMA [Suspect]
     Active Substance: RITUXIMAB-ABBS
     Indication: Myelin oligodendrocyte glycoprotein antibody-associated disease
     Dosage: OTHER FREQUENCY : EVERY 6 MONTHS;?
     Route: 042
     Dates: start: 20240731
  2. MIRENA [Concomitant]
     Active Substance: LEVONORGESTREL

REACTIONS (3)
  - Pyrexia [None]
  - Pain [None]
  - Infusion related reaction [None]

NARRATIVE: CASE EVENT DATE: 20240731
